FAERS Safety Report 4692201-2 (Version None)
Quarter: 2005Q2

REPORT INFORMATION
  Report Type: 
  Country: None (occurrence: None)
  Receive Date: 20050615
  Receipt Date: 20050602
  Transmission Date: 20051028
  Serious: Yes (Death)
  Sender: FDA-Public Use
  Company Number: 2005075650

PATIENT
  Age: 77 Year
  Sex: Male

DRUGS (3)
  1. UNASYN [Suspect]
     Indication: PNEUMONIA
     Dosage: 3 GRAM (1.5 GRAM, 2 IN 1 D), INTRAVENOUS
     Route: 042
     Dates: start: 20050507, end: 20050513
  2. FULCALIQ (AMINO ACIDS NOS, ELECTROLYTES NOS, GLUCOSE, VITAMIN NOS) [Concomitant]
  3. FAMOTIDINE [Concomitant]

REACTIONS (5)
  - ALANINE AMINOTRANSFERASE INCREASED [None]
  - ASPARTATE AMINOTRANSFERASE INCREASED [None]
  - CARDIAC FAILURE [None]
  - DISSEMINATED INTRAVASCULAR COAGULATION [None]
  - HEPATIC FUNCTION ABNORMAL [None]
